FAERS Safety Report 4899181-5 (Version None)
Quarter: 2006Q1

REPORT INFORMATION
  Report Type: 
  Country: None (occurrence: None)
  Receive Date: 20060130
  Receipt Date: 20060118
  Transmission Date: 20060701
  Serious: Yes (Death, Other)
  Sender: FDA-Public Use
  Company Number: 2005160751

PATIENT
  Sex: 0

DRUGS (3)
  1. CELEBREX [Suspect]
     Indication: BACK PAIN
     Dosage: 600 MG (200 MG, 3 IN 1 D), ORAL
     Route: 048
     Dates: start: 20051110, end: 20051101
  2. VOLTAREN [Suspect]
     Indication: BACK PAIN
     Dosage: 1 IN 1 D, OTHER
     Dates: start: 20051110, end: 20051101
  3. HYOSCINE HBR HYT [Concomitant]

REACTIONS (3)
  - DRUG EXPOSURE DURING PREGNANCY [None]
  - INAPPROPRIATE SCHEDULE OF DRUG ADMINISTRATION [None]
  - PREMATURE BABY [None]
